FAERS Safety Report 9051837 (Version 1)
Quarter: 2013Q1

REPORT INFORMATION
  Report Type: Spontaneous
  Country: US (occurrence: US)
  Receive Date: 20130207
  Receipt Date: 20130207
  Transmission Date: 20140127
  Serious: Yes (Hospitalization)
  Sender: FDA-Public Use
  Company Number: US-BAYER-2013-015453

PATIENT
  Age: 47 Year
  Sex: Female

DRUGS (4)
  1. YAZ [Suspect]
     Indication: MENORRHAGIA
  2. TRAZODONE [Concomitant]
  3. FLUOXETINE [Concomitant]
  4. KLONOPIN [Concomitant]

REACTIONS (2)
  - Pulmonary embolism [Recovered/Resolved]
  - Deep vein thrombosis [None]
